FAERS Safety Report 11148708 (Version 4)
Quarter: 2018Q3

REPORT INFORMATION
  Report Type: Report from Study
  Country: US (occurrence: US)
  Receive Date: 20150529
  Receipt Date: 20180710
  Transmission Date: 20181010
  Serious: Yes (Hospitalization, Other)
  Sender: FDA-Public Use
  Company Number: US-SANOFI-AVENTIS-2013SA057284

PATIENT
  Age: 78 Year
  Sex: Female
  Weight: 62.14 kg

DRUGS (11)
  1. TERIFLUNOMIDE [Suspect]
     Active Substance: TERIFLUNOMIDE
     Dosage: 14 MG,QD
     Route: 048
     Dates: start: 20160403
  2. WELLBUTRIN [Concomitant]
     Active Substance: BUPROPION HYDROCHLORIDE
     Indication: DEPRESSION
     Dosage: 150 MG,UNK
     Route: 065
  3. VITAMIN D3 [Concomitant]
     Active Substance: CHOLECALCIFEROL
     Indication: MULTIPLE SCLEROSIS
     Dosage: 8000 DF,UNK
     Route: 065
  4. CITALOPRAM HYDROBROMIDE. [Concomitant]
     Active Substance: CITALOPRAM HYDROBROMIDE
     Indication: DEPRESSION
     Dosage: 20 MG,UNK
     Route: 065
  5. TERIFLUNOMIDE [Suspect]
     Active Substance: TERIFLUNOMIDE
     Indication: MULTIPLE SCLEROSIS
     Dosage: 14 MG,QD
     Route: 048
     Dates: start: 20130518, end: 201601
  6. SYNTHROID [Concomitant]
     Active Substance: LEVOTHYROXINE SODIUM
     Indication: HYPOTHYROIDISM
     Dosage: 80 MG,UNK
     Route: 065
  7. TERIFLUNOMIDE [Suspect]
     Active Substance: TERIFLUNOMIDE
     Dosage: 14 MG, QD
     Route: 048
     Dates: start: 2012
  8. CALCIUM CITRATE [Concomitant]
     Active Substance: CALCIUM CITRATE
     Dosage: 120 MG,UNK
     Route: 065
  9. BIOTIN [Concomitant]
     Active Substance: BIOTIN
     Dosage: UNK
  10. TERIFLUNOMIDE [Suspect]
     Active Substance: TERIFLUNOMIDE
     Dosage: 14 MG,QD
     Route: 048
     Dates: start: 20130518, end: 201601
  11. CALCIUM [Concomitant]
     Active Substance: CALCIUM
     Dosage: UNK

REACTIONS (30)
  - Hysterectomy [Unknown]
  - Arthropathy [Recovered/Resolved]
  - Gait disturbance [Not Recovered/Not Resolved]
  - Multiple sclerosis [Recovering/Resolving]
  - Fall [Unknown]
  - Diarrhoea [Unknown]
  - Musculoskeletal pain [Recovered/Resolved]
  - Colitis microscopic [Recovered/Resolved]
  - Rotator cuff syndrome [Unknown]
  - Post procedural sepsis [Recovered/Resolved]
  - Paraesthesia [Recovering/Resolving]
  - Pain in extremity [Not Recovered/Not Resolved]
  - Cerebral disorder [Not Recovered/Not Resolved]
  - Dizziness [Recovering/Resolving]
  - Asthenia [Recovering/Resolving]
  - Abdominal distension [Recovering/Resolving]
  - Alopecia [Unknown]
  - Gastrointestinal disorder [Recovered/Resolved]
  - Multiple sclerosis relapse [Unknown]
  - Arthritis [Not Recovered/Not Resolved]
  - Blood sodium decreased [Not Recovered/Not Resolved]
  - Eating disorder [Not Recovered/Not Resolved]
  - Myocardial necrosis marker increased [Unknown]
  - Balance disorder [Not Recovered/Not Resolved]
  - Stress [Unknown]
  - Head injury [Not Recovered/Not Resolved]
  - Blood pressure increased [Recovered/Resolved]
  - Groin pain [Not Recovered/Not Resolved]
  - Decreased appetite [Recovering/Resolving]
  - Back pain [Unknown]

NARRATIVE: CASE EVENT DATE: 201306
